FAERS Safety Report 7983503-2 (Version None)
Quarter: 2011Q4

REPORT INFORMATION
  Report Type: 
  Country: None (occurrence: None)
  Receive Date: 20111215
  Receipt Date: 20111206
  Transmission Date: 20120403
  Serious: Yes (Hospitalization, Other)
  Sender: FDA-Public Use
  Company Number: CH-BAXTER-2011BH038389

PATIENT
  Age: 58 Year
  Sex: Male
  Weight: 80 kg

DRUGS (7)
  1. GAMMAGARD LIQUID [Suspect]
     Indication: TOXIC EPIDERMAL NECROLYSIS
     Route: 042
     Dates: start: 20111119, end: 20111121
  2. GAMMAGARD LIQUID [Suspect]
     Route: 065
     Dates: start: 20111112
  3. GAMMAGARD LIQUID [Suspect]
     Route: 065
     Dates: start: 20111112
  4. LAMOTRIGINE [Suspect]
     Indication: EPILEPSY
     Route: 048
     Dates: start: 20111001, end: 20111116
  5. PHENYTOIN [Suspect]
     Indication: TEMPORAL LOBE EPILEPSY
     Route: 048
     Dates: start: 19810101
  6. GAMMAGARD LIQUID [Suspect]
     Indication: OFF LABEL USE
     Route: 042
     Dates: start: 20111119, end: 20111121
  7. PHENYTOIN [Suspect]
     Route: 048
     Dates: start: 20111112

REACTIONS (3)
  - HYPERPYREXIA [None]
  - CONJUNCTIVITIS [None]
  - CHILLS [None]
